FAERS Safety Report 9436261 (Version 1)
Quarter: 2013Q3

REPORT INFORMATION
  Report Type: Spontaneous
  Country: US (occurrence: US)
  Receive Date: 20130802
  Receipt Date: 20130802
  Transmission Date: 20140515
  Serious: Yes (Death, Hospitalization)
  Sender: FDA-Public Use
  Company Number: US-AMGEN-USASP2013052781

PATIENT
  Sex: Female

DRUGS (1)
  1. ENBREL [Suspect]
     Indication: RHEUMATOID ARTHRITIS
     Dosage: UNK UNK, QWK
     Route: 065
     Dates: start: 2008, end: 2008

REACTIONS (9)
  - Small cell lung cancer [Fatal]
  - Platelet count decreased [Unknown]
  - Liver disorder [Unknown]
  - Hand deformity [Unknown]
  - Renal impairment [Unknown]
  - Blood pressure abnormal [Unknown]
  - Foot deformity [Unknown]
  - Injection site erythema [Recovered/Resolved]
  - Injection site rash [Recovered/Resolved]
